FAERS Safety Report 26165926 (Version 1)
Quarter: 2025Q4

REPORT INFORMATION
  Report Type: Spontaneous
  Country: US (occurrence: US)
  Receive Date: 20251216
  Receipt Date: 20251216
  Transmission Date: 20260117
  Serious: No
  Sender: JOHNSON AND JOHNSON
  Company Number: US-JNJFOC-20251203071

PATIENT
  Sex: Male

DRUGS (2)
  1. INLEXZO [Suspect]
     Active Substance: GEMCITABINE
     Indication: Bladder transitional cell carcinoma
     Route: 066
     Dates: start: 20251111, end: 20251202
  2. INLEXZO [Suspect]
     Active Substance: GEMCITABINE

REACTIONS (4)
  - Micturition urgency [Unknown]
  - Poor quality sleep [Unknown]
  - Pollakiuria [Unknown]
  - Dysuria [Unknown]

NARRATIVE: CASE EVENT DATE: 20251202
